FAERS Safety Report 7756231-6 (Version None)
Quarter: 2011Q3

REPORT INFORMATION
  Report Type: 
  Country: None (occurrence: None)
  Receive Date: 20110916
  Receipt Date: 20110914
  Transmission Date: 20111222
  Serious: Yes (Death, Hospitalization, Other)
  Sender: FDA-Public Use
  Company Number: DE-B.I. PHARMACEUTICALS,INC./RIDGEFIELD-2011-DE-01781GD

PATIENT
  Age: 53 Year
  Sex: Female

DRUGS (11)
  1. FONDAPARINUX SODIUM [Suspect]
     Dosage: 2.5 MG
  2. ALTEPLASE [Suspect]
     Indication: PULMONARY EMBOLISM
     Dosage: 50 MG
  3. PACLITAXEL [Suspect]
     Indication: ADENOCARCINOMA
  4. ARGATROBAN [Suspect]
     Indication: PULMONARY EMBOLISM
     Dosage: APTT 2-2.5 ULN
     Route: 042
  5. CARBOPLATIN [Suspect]
     Indication: METASTASES TO LYMPH NODES
  6. DABIGATRAN [Suspect]
     Indication: TROUSSEAU'S SYNDROME
     Dosage: 75 MG
     Route: 048
  7. FONDAPARINUX SODIUM [Suspect]
     Dosage: 5 MG
  8. CARBOPLATIN [Suspect]
     Indication: ADENOCARCINOMA
  9. PACLITAXEL [Suspect]
     Indication: METASTASES TO LYMPH NODES
  10. DABIGATRAN [Suspect]
     Dosage: 300 MG
     Route: 048
  11. FONDAPARINUX SODIUM [Suspect]
     Indication: TROUSSEAU'S SYNDROME
     Dosage: 7.5 MG

REACTIONS (7)
  - ADENOCARCINOMA [None]
  - PNEUMONIA [None]
  - HAEMOPTYSIS [None]
  - NEUTROPENIC INFECTION [None]
  - PULMONARY EMBOLISM [None]
  - MYOCARDIAL STRAIN [None]
  - PERICARDIAL EFFUSION MALIGNANT [None]
